FAERS Safety Report 8093418-X (Version None)
Quarter: 2012Q1

REPORT INFORMATION
  Report Type: 
  Country: None (occurrence: None)
  Receive Date: 20120131
  Receipt Date: 20120126
  Transmission Date: 20120608
  Serious: Yes (Hospitalization, Other)
  Sender: FDA-Public Use
  Company Number: CA-TEVA-317630USA

PATIENT
  Sex: Male

DRUGS (26)
  1. FLUOROURACIL [Suspect]
     Indication: GASTROINTESTINAL CANCER METASTATIC
     Route: 042
     Dates: start: 20110831
  2. IBUPROFEN [Concomitant]
     Dates: start: 20110601, end: 20111107
  3. UBIDECARENONE [Concomitant]
     Dates: start: 20090801
  4. DEXAMETHASONE [Concomitant]
     Dates: start: 20110831
  5. OMEGA-3 FATTY ACIDS [Concomitant]
     Dates: start: 20090801
  6. ERGOCALCIFEROL [Concomitant]
     Dates: start: 20090801
  7. ACETYLSALICYLIC ACID SRT [Concomitant]
     Dates: start: 20110831, end: 20111105
  8. METOCLOPRAMIDE HCL [Concomitant]
     Dates: start: 20110831
  9. POLYETHYLENE GLYCOL [Concomitant]
     Dates: start: 20110905
  10. ACETAMINOPHEN [Concomitant]
     Dates: start: 20110601, end: 20110927
  11. ZOPICLONE [Concomitant]
     Dates: start: 20110701
  12. LACTULOSE [Concomitant]
     Dates: start: 20110903
  13. ULTIMAG [Concomitant]
     Dates: start: 20111029
  14. LIPLESS [Concomitant]
     Dates: start: 20111029
  15. IRINOTECAN HCL [Suspect]
     Indication: GASTROINTESTINAL CANCER METASTATIC
     Route: 042
     Dates: start: 20110831
  16. LEUCOVORIN CALCIUM [Suspect]
     Indication: GASTROINTESTINAL CANCER METASTATIC
     Route: 042
     Dates: start: 20110831
  17. ONDANSETRON [Concomitant]
     Dates: start: 20110831
  18. OXYCODONE HCL [Concomitant]
     Dates: start: 20110701
  19. LORAZEPAM [Concomitant]
     Dates: start: 20110701
  20. MULTI-VITAMIN [Concomitant]
     Dates: start: 20090801
  21. DOCUSATE SODIUM [Concomitant]
     Dates: start: 20110903, end: 20110927
  22. SELENIUM [Concomitant]
     Dates: start: 20090801
  23. VITIS VINIFERA EXTRACT [Concomitant]
     Dates: start: 20090801
  24. BRIVANIB ALANINATE [Suspect]
     Indication: GASTROINTESTINAL CANCER METASTATIC
     Dosage: 800 MILLIGRAM;
     Route: 048
     Dates: start: 20110831
  25. RETINOL [Concomitant]
     Dates: start: 20090801
  26. TOCOPHEROL CONCENTRATE CAP [Concomitant]
     Dates: start: 20090801

REACTIONS (2)
  - FEBRILE NEUTROPENIA [None]
  - HYPERBILIRUBINAEMIA [None]
